FAERS Safety Report 8335084-1 (Version None)
Quarter: 2012Q2

REPORT INFORMATION
  Report Type: 
  Country: None (occurrence: None)
  Receive Date: 20120503
  Receipt Date: 20100427
  Transmission Date: 20120825
  Serious: No
  Sender: FDA-Public Use
  Company Number: US-TEVA-2010002423

PATIENT
  Sex: Male
  Weight: 60.836 kg

DRUGS (5)
  1. LEXAPRO [Concomitant]
  2. SEROQUEL [Concomitant]
  3. XANAX [Concomitant]
  4. LAMICTAL [Concomitant]
  5. NUVIGIL [Suspect]
     Indication: NARCOLEPSY
     Dosage: 250 MILLIGRAM;
     Route: 048
     Dates: start: 20090101, end: 20100427

REACTIONS (1)
  - DRUG TOLERANCE [None]
